FAERS Safety Report 21131179 (Version 1)
Quarter: 2022Q3

REPORT INFORMATION
  Report Type: Spontaneous
  Country: US (occurrence: None)
  Receive Date: 20220726
  Receipt Date: 20220726
  Transmission Date: 20221027
  Serious: Yes (Hospitalization)
  Sender: FDA-Public Use
  Company Number: None

PATIENT
  Sex: Female
  Weight: 77.7 kg

DRUGS (3)
  1. LENALIDOMIDE [Suspect]
     Active Substance: LENALIDOMIDE
     Dates: end: 20220708
  2. DARATUMUMAB [Suspect]
     Active Substance: DARATUMUMAB
     Dates: end: 20220621
  3. DEXAMETHASONE [Suspect]
     Active Substance: DEXAMETHASONE
     Dates: end: 20220621

REACTIONS (5)
  - COVID-19 [None]
  - Cough [None]
  - Dyspnoea [None]
  - Musculoskeletal pain [None]
  - Tachycardia [None]

NARRATIVE: CASE EVENT DATE: 20220708
